FAERS Safety Report 9230114 (Version 1)
Quarter: 2013Q2

REPORT INFORMATION
  Report Type: Spontaneous
  Country: US (occurrence: None)
  Receive Date: 20130412
  Receipt Date: 20130412
  Transmission Date: 20140414
  Serious: No
  Sender: FDA-Public Use
  Company Number: None

PATIENT
  Age: 70 Year
  Sex: Female

DRUGS (1)
  1. XARELTO, 20 MG, JANSSEN PHARM [Suspect]
     Indication: ATRIAL FIBRILLATION
     Route: 048
     Dates: end: 20130314

REACTIONS (1)
  - Pruritus [None]
